FAERS Safety Report 5756582-0 (Version None)
Quarter: 2008Q2

REPORT INFORMATION
  Report Type: 
  Country: None (occurrence: None)
  Receive Date: 20080528
  Receipt Date: 20080514
  Transmission Date: 20081010
  Serious: Yes (Life-Threatening, Hospitalization, Other)
  Sender: FDA-Public Use
  Company Number: 2007SP024604

PATIENT
  Age: 54 Year
  Sex: Male
  Weight: 87.9978 kg

DRUGS (8)
  1. PEG-INTRON [Suspect]
     Indication: HEPATITIS C
     Dosage: 150 MCG; QW; SC
     Route: 058
     Dates: start: 20071005, end: 20071203
  2. TARIBAVIRIN [Suspect]
     Indication: HEPATITIS C
     Dosage: 2800 MG; QD; 2200 MG; QD;
     Dates: start: 20071005, end: 20071127
  3. TARIBAVIRIN [Suspect]
     Indication: HEPATITIS C
     Dosage: 2800 MG; QD; 2200 MG; QD;
     Dates: start: 20071128, end: 20071203
  4. CLONAZEPAM (CON.) [Concomitant]
  5. MOTRIN (CON.) [Concomitant]
  6. COMPAZINE (CON.) [Concomitant]
  7. PREVACID (CON.) [Concomitant]
  8. ZOFRAN (CON.) [Concomitant]

REACTIONS (33)
  - ACUTE RESPIRATORY DISTRESS SYNDROME [None]
  - AMNESIA [None]
  - APPENDICECTOMY [None]
  - ASPIRATION [None]
  - BODY TEMPERATURE INCREASED [None]
  - CANDIDIASIS [None]
  - CONFUSIONAL STATE [None]
  - CONVULSION [None]
  - DEHYDRATION [None]
  - DELIRIUM [None]
  - DIARRHOEA [None]
  - DISTURBANCE IN ATTENTION [None]
  - ELECTROLYTE IMBALANCE [None]
  - ENCEPHALITIS VIRAL [None]
  - FAECALITH [None]
  - HAEMATEMESIS [None]
  - HYPOTENSION [None]
  - HYPOXIA [None]
  - INCOHERENT [None]
  - LOBAR PNEUMONIA [None]
  - METABOLIC ENCEPHALOPATHY [None]
  - PLEURAL EFFUSION [None]
  - PNEUMONIA [None]
  - RESPIRATORY FAILURE [None]
  - SEPSIS [None]
  - SMALL INTESTINAL OBSTRUCTION [None]
  - STATUS EPILEPTICUS [None]
  - TACHYCARDIA [None]
  - TACHYPNOEA [None]
  - TREMOR [None]
  - ULCER [None]
  - UNRESPONSIVE TO STIMULI [None]
  - UPPER GASTROINTESTINAL HAEMORRHAGE [None]
